FAERS Safety Report 7133149-3 (Version None)
Quarter: 2010Q4

REPORT INFORMATION
  Report Type: 
  Country: None (occurrence: None)
  Receive Date: 20101202
  Receipt Date: 20101124
  Transmission Date: 20110411
  Serious: Yes (Life-Threatening, Hospitalization, Other)
  Sender: FDA-Public Use
  Company Number: JP-ABBOTT-10P-087-0618956-00

PATIENT
  Sex: Female
  Weight: 40.5 kg

DRUGS (12)
  1. HUMIRA [Suspect]
     Indication: RHEUMATOID ARTHRITIS
     Route: 058
     Dates: start: 20090716, end: 20090930
  2. METHOTREXATE [Concomitant]
     Indication: RHEUMATOID ARTHRITIS
     Dates: end: 20090916
  3. FOLIC ACID [Concomitant]
     Indication: PROPHYLAXIS
  4. FOLIC ACID [Concomitant]
     Indication: ADVERSE DRUG REACTION
  5. ALENDRONATE SODIUM [Concomitant]
     Indication: OSTEOPOROSIS PROPHYLAXIS
  6. ALFACALCIDOL [Concomitant]
     Indication: OSTEOPOROSIS PROPHYLAXIS
  7. ENALAPRIL MALEATE [Concomitant]
     Indication: PROTEIN URINE
     Dates: end: 20090813
  8. OLMESARTAN MEDOXOMIL [Concomitant]
     Indication: PROTEIN URINE
     Dates: end: 20090813
  9. LANSOPRAZOLE [Concomitant]
     Indication: PROPHYLAXIS
  10. LANSOPRAZOLE [Concomitant]
  11. SODIUM GUALENATE HYDRATE/L-GLUTAMINE [Concomitant]
     Indication: GASTROINTESTINAL DISORDER
  12. SODIUM GUALENATE HYDRATE/L-GLUTAMINE [Concomitant]

REACTIONS (5)
  - NEPHROTIC SYNDROME [None]
  - PNEUMONIA [None]
  - PYREXIA [None]
  - RASH [None]
  - RENAL FAILURE ACUTE [None]
